FAERS Safety Report 17920002 (Version 2)
Quarter: 2020Q2

REPORT INFORMATION
  Report Type: Spontaneous
  Country: IT (occurrence: IT)
  Receive Date: 20200620
  Receipt Date: 20200626
  Transmission Date: 20200714
  Serious: Yes (Death, Other)
  Sender: FDA-Public Use
  Company Number: IT-AUROBINDO-AUR-APL-2020-029742

PATIENT
  Age: 73 Year
  Sex: Male
  Weight: 75 kg

DRUGS (9)
  1. TIROFIBAN [Suspect]
     Active Substance: TIROFIBAN
     Dosage: 25 MILLIGRAM/KILOGRAM, BODY
     Route: 040
     Dates: start: 20200409
  2. CLOPIDOGREL [Suspect]
     Active Substance: CLOPIDOGREL BISULFATE
     Indication: ANTIPLATELET THERAPY
     Dosage: 75 MILLIGRAM, ONCE A DAY
     Route: 048
  3. ACETYLSALICYLIC ACID [Suspect]
     Active Substance: ASPIRIN
     Indication: ANTIPLATELET THERAPY
     Dosage: 250 MILLIGRAM
     Route: 042
  4. ACETYLSALICYLIC ACID [Suspect]
     Active Substance: ASPIRIN
     Dosage: 75 MILLIGRAM, ONCE A DAY
     Route: 048
  5. TIROFIBAN [Suspect]
     Active Substance: TIROFIBAN
     Indication: ANTIPLATELET THERAPY
     Dosage: 0.15 MILLIGRAM/KILOGRAM, BODY PER MINUTE FOR 48 HOURS
     Route: 042
  6. CLOPIDOGREL [Suspect]
     Active Substance: CLOPIDOGREL BISULFATE
     Dosage: 300 MILLIGRAM
     Route: 048
  7. HYDROXYCHLOROQUINE [Suspect]
     Active Substance: HYDROXYCHLOROQUINE
     Indication: PRODUCT USED FOR UNKNOWN INDICATION
     Dosage: UNK
     Route: 042
  8. FONDAPARINUX SODIUM. [Suspect]
     Active Substance: FONDAPARINUX SODIUM
     Indication: THROMBOSIS PROPHYLAXIS
     Dosage: 2.5 MILLIGRAM, ONCE A DAY
     Route: 058
  9. METHYLPREDNISOLONE. [Suspect]
     Active Substance: METHYLPREDNISOLONE
     Indication: PRODUCT USED FOR UNKNOWN INDICATION
     Dosage: 1 MILLIGRAM/KILOGRAM
     Route: 065

REACTIONS (5)
  - Pyrexia [Unknown]
  - Sepsis [Fatal]
  - Respiratory distress [Fatal]
  - Leukocytosis [Unknown]
  - C-reactive protein increased [Unknown]
